FAERS Safety Report 6841016-5 (Version None)
Quarter: 2010Q3

REPORT INFORMATION
  Report Type: 
  Country: None (occurrence: None)
  Receive Date: 20100714
  Receipt Date: 20100630
  Transmission Date: 20110219
  Serious: Yes (Life-Threatening)
  Sender: FDA-Public Use
  Company Number: ES-CVT-100424

PATIENT

DRUGS (4)
  1. RANEXA [Suspect]
     Indication: MYOCARDIAL ISCHAEMIA
     Dosage: 375 MG, BID
     Route: 048
     Dates: start: 20100501, end: 20100501
  2. CLOPIDOGREL                        /01220701/ [Concomitant]
     Indication: MYOCARDIAL ISCHAEMIA
  3. AMLODIPINE [Concomitant]
     Indication: MYOCARDIAL ISCHAEMIA
  4. ASPIRIN [Concomitant]
     Indication: MYOCARDIAL ISCHAEMIA

REACTIONS (2)
  - CARDIAC ARREST [None]
  - TORSADE DE POINTES [None]
